FAERS Safety Report 9891258 (Version 2)
Quarter: 2014Q1

REPORT INFORMATION
  Report Type: Spontaneous
  Country: CO (occurrence: CO)
  Receive Date: 20140212
  Receipt Date: 20140212
  Transmission Date: 20141002
  Serious: Yes (Death)
  Sender: FDA-Public Use
  Company Number: CO-PFIZER INC-2013274058

PATIENT
  Age: 21 Year
  Sex: Male

DRUGS (3)
  1. INSPRA [Suspect]
     Dosage: 25 MG, 1X/DAY
     Route: 048
     Dates: end: 20130916
  2. INSPRA [Suspect]
     Dosage: 50 MG, 1X/DAY
     Route: 048
     Dates: start: 20130916
  3. UROQUAD [Suspect]
     Indication: BLOOD URIC ACID INCREASED
     Dosage: UNK
     Route: 065

REACTIONS (6)
  - Death [Fatal]
  - Diarrhoea [Not Recovered/Not Resolved]
  - Vomiting [Not Recovered/Not Resolved]
  - Viral infection [Not Recovered/Not Resolved]
  - Blood bilirubin increased [Not Recovered/Not Resolved]
  - Hepatitis [Not Recovered/Not Resolved]
